FAERS Safety Report 10427416 (Version 1)
Quarter: 2014Q3

REPORT INFORMATION
  Report Type: Spontaneous
  Country: US (occurrence: None)
  Receive Date: 20140902
  Receipt Date: 20140902
  Transmission Date: 20150326
  Serious: Yes (Life-Threatening, Hospitalization, Other)
  Sender: FDA-Public Use
  Company Number: None

PATIENT
  Age: 47 Year
  Sex: Female
  Weight: 56.25 kg

DRUGS (1)
  1. ALESSE 28 [Suspect]
     Active Substance: ETHINYL ESTRADIOL\LEVONORGESTREL
     Indication: CONTRACEPTION
     Dosage: I PER DAY ONCE DAILY TAKEN BY MOUTH
     Route: 048

REACTIONS (4)
  - Embolic stroke [None]
  - Myocardial infarction [None]
  - Coronary artery occlusion [None]
  - Hemiplegia [None]

NARRATIVE: CASE EVENT DATE: 20120421
